FAERS Safety Report 8856555 (Version 1)
Quarter: 2012Q4

REPORT INFORMATION
  Report Type: Spontaneous
  Country: US (occurrence: None)
  Receive Date: 20121018
  Receipt Date: 20121018
  Transmission Date: 20130627
  Serious: Yes (Death, Hospitalization)
  Sender: FDA-Public Use
  Company Number: DKLU1085123

PATIENT
  Age: 64 Year
  Sex: Female

DRUGS (2)
  1. ONFI (CLOBAZAM) (CLOBAZAM) (10 MG, TABLET) [Suspect]
     Indication: GRAND MAL CONVULSION
     Route: 048
     Dates: start: 20120417
  2. DILANTIN (PHENYTOIN) [Concomitant]

REACTIONS (10)
  - Respiratory arrest [None]
  - Pneumonia aspiration [None]
  - Haemoglobin decreased [None]
  - Haematocrit decreased [None]
  - Swelling [None]
  - Somnolence [None]
  - Lethargy [None]
  - Rash [None]
  - Weight increased [None]
  - Oxygen saturation decreased [None]
